FAERS Safety Report 7176599-1 (Version None)
Quarter: 2010Q4

REPORT INFORMATION
  Report Type: 
  Country: None (occurrence: None)
  Receive Date: 20101220
  Receipt Date: 20101213
  Transmission Date: 20110411
  Serious: Yes (Hospitalization)
  Sender: FDA-Public Use
  Company Number: US-US-EMD SERONO, INC.-7027254

PATIENT
  Sex: Female

DRUGS (5)
  1. REBIF [Suspect]
     Indication: PRODUCT USED FOR UNKNOWN INDICATION
     Route: 058
     Dates: start: 20101013
  2. REBIF [Suspect]
     Route: 058
     Dates: start: 20100101
  3. COPEGUS [Concomitant]
     Indication: HEPATITIS C
     Dates: start: 20100101
  4. INTERFERON INJECTIONS [Concomitant]
     Indication: HEPATITIS C
  5. UNSPECIFIED PILLS [Concomitant]
     Indication: HEPATITIS C

REACTIONS (10)
  - CONTUSION [None]
  - EPISTAXIS [None]
  - FEELING ABNORMAL [None]
  - HAEMORRHAGE [None]
  - INFLUENZA LIKE ILLNESS [None]
  - INJECTION SITE ERYTHEMA [None]
  - INJECTION SITE PAIN [None]
  - INJECTION SITE REACTION [None]
  - NASAL DRYNESS [None]
  - NASOPHARYNGITIS [None]
